APPROVED DRUG PRODUCT: PAMIDRONATE DISODIUM
Active Ingredient: PAMIDRONATE DISODIUM
Strength: 90MG/10ML (9MG/ML)
Dosage Form/Route: INJECTABLE;INJECTION
Application: A076207 | Product #002
Applicant: FRESENIUS KABI USA LLC
Approved: May 17, 2002 | RLD: No | RS: No | Type: DISCN